FAERS Safety Report 5806256-2 (Version None)
Quarter: 2008Q3

REPORT INFORMATION
  Report Type: 
  Country: None (occurrence: None)
  Receive Date: 20080709
  Receipt Date: 20080709
  Transmission Date: 20090109
  Serious: Yes (Disabling)
  Sender: FDA-Public Use
  Company Number: None

PATIENT
  Sex: Female

DRUGS (3)
  1. MARCAINE [Suspect]
     Indication: ARTHROPATHY
     Dosage: 300 ML OVER 3 DAYS 014
     Dates: start: 20031219, end: 20031222
  2. MARCAINE [Suspect]
     Indication: DEBRIDEMENT
     Dosage: 300 ML OVER 3 DAYS 014
     Dates: start: 20031219, end: 20031222
  3. PAIN BUSTER PAIN PUMP [Concomitant]

REACTIONS (1)
  - CHONDROLYSIS [None]
